FAERS Safety Report 23468228 (Version 1)
Quarter: 2024Q1

REPORT INFORMATION
  Report Type: Spontaneous
  Country: US (occurrence: None)
  Receive Date: 20240201
  Receipt Date: 20240201
  Transmission Date: 20240410
  Serious: Yes (Other)
  Sender: FDA-Public Use
  Company Number: 2024A020467

PATIENT
  Sex: Female

DRUGS (1)
  1. SYMBICORT [Suspect]
     Active Substance: BUDESONIDE\FORMOTEROL FUMARATE DIHYDRATE
     Dosage: UNKNOWN UNKNOWN
     Route: 055

REACTIONS (8)
  - Carotid artery stenosis [Unknown]
  - Subclavian artery stenosis [Unknown]
  - Asthma [Unknown]
  - Stenosis [Unknown]
  - Arthritis [Unknown]
  - Rheumatoid arthritis [Unknown]
  - Off label use [Unknown]
  - Inability to afford medication [Unknown]
